FAERS Safety Report 8426753-3 (Version None)
Quarter: 2012Q2

REPORT INFORMATION
  Report Type: 
  Country: None (occurrence: None)
  Receive Date: 20120611
  Receipt Date: 20120605
  Transmission Date: 20120825
  Serious: Yes (Hospitalization, Other)
  Sender: FDA-Public Use
  Company Number: PHEH2012US008580

PATIENT
  Sex: Male
  Weight: 97.5 kg

DRUGS (1)
  1. CLOZARIL [Suspect]
     Indication: SCHIZOPHRENIA
     Dosage: 5 DF, (TOOK 2 DF IN AM, 1DF IN NOON AND 2 DF IN PM)
     Route: 048

REACTIONS (4)
  - DYSPHAGIA [None]
  - PNEUMONIA [None]
  - MUSCLE ATROPHY [None]
  - CONSTIPATION [None]
